FAERS Safety Report 12191160 (Version 1)
Quarter: 2016Q1

REPORT INFORMATION
  Report Type: Spontaneous
  Country: US (occurrence: US)
  Receive Date: 20160318
  Receipt Date: 20160318
  Transmission Date: 20160526
  Serious: Yes (Death, Hospitalization)
  Sender: FDA-Public Use
  Company Number: US-ABBVIE-16P-114-1557574-00

PATIENT
  Age: 72 Year
  Sex: Male
  Weight: 85.35 kg

DRUGS (4)
  1. RIBAVIRIN. [Concomitant]
     Active Substance: RIBAVIRIN
     Indication: PRODUCT USED FOR UNKNOWN INDICATION
  2. GLYBURIDE. [Concomitant]
     Active Substance: GLYBURIDE
     Indication: PRODUCT USED FOR UNKNOWN INDICATION
  3. METFORMIN [Concomitant]
     Active Substance: METFORMIN HYDROCHLORIDE
     Indication: PRODUCT USED FOR UNKNOWN INDICATION
  4. VIEKIRA PAK [Suspect]
     Active Substance: DASABUVIR\OMBITASVIR\PARITAPREVIR\RITONAVIR
     Indication: HEPATITIS C
     Dosage: 2 WEEKS
     Route: 048

REACTIONS (11)
  - Cholecystitis [Unknown]
  - Blood bilirubin increased [Unknown]
  - Arteriosclerosis coronary artery [Fatal]
  - Acidosis [Unknown]
  - Acute kidney injury [Fatal]
  - Pain in extremity [Unknown]
  - Hepatic cirrhosis [Fatal]
  - Cholelithiasis [Unknown]
  - Ascites [Fatal]
  - Respiratory failure [Unknown]
  - Acute hepatic failure [Fatal]

NARRATIVE: CASE EVENT DATE: 20151018
